FAERS Safety Report 8314508-X (Version None)
Quarter: 2012Q2

REPORT INFORMATION
  Report Type: 
  Country: None (occurrence: None)
  Receive Date: 20120426
  Receipt Date: 20120420
  Transmission Date: 20120825
  Serious: Yes (Other)
  Sender: FDA-Public Use
  Company Number: US-ROCHE-1062119

PATIENT
  Age: 45 Year
  Sex: Female
  Weight: 73.548 kg

DRUGS (1)
  1. HERCEPTIN [Suspect]
     Indication: BREAST CANCER
     Dosage: DOSE: UNKNOWN
     Route: 042

REACTIONS (1)
  - HYPERCALCAEMIA [None]
